FAERS Safety Report 9212815 (Version 1)
Quarter: 2013Q2

REPORT INFORMATION
  Report Type: Spontaneous
  Country: DE (occurrence: DE)
  Receive Date: 20130405
  Receipt Date: 20130405
  Transmission Date: 20140414
  Serious: Yes (Other)
  Sender: FDA-Public Use
  Company Number: DE-RANBAXY-2013RR-66873

PATIENT
  Age: 62 Year
  Sex: Female

DRUGS (1)
  1. CEFUROXIM [Suspect]
     Indication: SINUSITIS
     Dosage: UNK
     Route: 048
     Dates: start: 20130318

REACTIONS (8)
  - Cardiac disorder [Unknown]
  - Pyrexia [Unknown]
  - Abdominal pain upper [Unknown]
  - Muscle spasms [Unknown]
  - Diarrhoea [Unknown]
  - Chills [Unknown]
  - Pain [Unknown]
  - Nausea [Unknown]
